FAERS Safety Report 12710040 (Version 1)
Quarter: 2016Q3

REPORT INFORMATION
  Report Type: Spontaneous
  Country: US (occurrence: US)
  Receive Date: 20160902
  Receipt Date: 20160902
  Transmission Date: 20161109
  Serious: Yes (Hospitalization, Other)
  Sender: FDA-Public Use
  Company Number: US-GLAXOSMITHKLINE-US2016GSK127065

PATIENT
  Age: 8 Year
  Sex: Male

DRUGS (2)
  1. BUPROPION. [Suspect]
     Active Substance: BUPROPION
     Dosage: 300 MG, UNK
     Route: 048
  2. RISPERDAL [Suspect]
     Active Substance: RISPERIDONE
     Route: 048

REACTIONS (6)
  - Anger [Unknown]
  - Aggression [Unknown]
  - Emotional disorder [Unknown]
  - Autism [Not Recovered/Not Resolved]
  - Accidental exposure to product [Recovered/Resolved]
  - Seizure [Recovered/Resolved]
